FAERS Safety Report 19510305 (Version 1)
Quarter: 2021Q3

REPORT INFORMATION
  Report Type: Spontaneous
  Country: PL (occurrence: PL)
  Receive Date: 20210709
  Receipt Date: 20210709
  Transmission Date: 20211014
  Serious: Yes (Life-Threatening)
  Sender: FDA-Public Use
  Company Number: PL-TEVA-2021-PL-1930075

PATIENT
  Age: 53 Year
  Sex: Male
  Weight: 100 kg

DRUGS (5)
  1. DORETA [Suspect]
     Active Substance: ACETAMINOPHEN\TRAMADOL HYDROCHLORIDE
     Dosage: 7 TABLETS OF A DRUG WERE TAKEN DUE TO SUICIDE ATTEMPT, ROUTE OF ADMINISTRATION : ORAL .
     Route: 048
  2. PARACETAMOL [Suspect]
     Active Substance: ACETAMINOPHEN
     Dosage: 25 TABLETS OF A DRUG WERE TAKEN DUE TO SUICIDE ATTEMPT, ROUTE OF ADMINISTRATION : ORAL .
     Route: 048
  3. IBUPROFEN. [Suspect]
     Active Substance: IBUPROFEN
     Dosage: 30 TABLETS OF A DRUG WERE TAKEN DUE TO SUICIDE ATTEMPT, ROUTE OF ADMINISTRATION : ORAL .
     Route: 048
  4. AMOTAKS [Suspect]
     Active Substance: AMOXICILLIN
     Dosage: 8 TABLETS OF A DRUG WERE TAKEN DUE TO SUICIDE ATTEMPT, ROUTE OF ADMINISTRATION : ORAL .
     Route: 048
  5. KETONAL [KETOPROFEN] [Suspect]
     Active Substance: KETOPROFEN
     Dosage: 1 PACKAGE OF A DRUG WERE TAKEN DUE TO SUICIDE ATTEMPT (AMONUNT OF TABLETS UNKNOWN), ROUTE OF ADMINIS
     Route: 048

REACTIONS (2)
  - Toxicity to various agents [Recovering/Resolving]
  - Suicide attempt [Recovering/Resolving]
